FAERS Safety Report 7941412-9 (Version None)
Quarter: 2011Q4

REPORT INFORMATION
  Report Type: 
  Country: None (occurrence: None)
  Receive Date: 20111122
  Receipt Date: 20110209
  Transmission Date: 20120403
  Serious: Yes (Hospitalization)
  Sender: FDA-Public Use
  Company Number: GER/USA/11/0017376

PATIENT
  Age: 23 Year
  Sex: Male

DRUGS (1)
  1. IBUPROFEN [Suspect]
     Indication: PYREXIA
     Dosage: 1 IN 1 D

REACTIONS (21)
  - GRANULOMA [None]
  - CROHN'S DISEASE [None]
  - WEIGHT DECREASED [None]
  - C-REACTIVE PROTEIN INCREASED [None]
  - RED BLOOD CELL SEDIMENTATION RATE INCREASED [None]
  - ABDOMINAL TENDERNESS [None]
  - PROCTITIS [None]
  - COLITIS [None]
  - APHTHOUS STOMATITIS [None]
  - NIGHT SWEATS [None]
  - REFUSAL OF TREATMENT BY PATIENT [None]
  - GASTRIC ULCER [None]
  - HAEMATOCHEZIA [None]
  - PROCTALGIA [None]
  - RECTAL ULCER [None]
  - GASTRITIS [None]
  - IRON DEFICIENCY ANAEMIA [None]
  - HYPOALBUMINAEMIA [None]
  - ABDOMINAL PAIN UPPER [None]
  - DIARRHOEA [None]
  - LETHARGY [None]
